FAERS Safety Report 7631207-8 (Version None)
Quarter: 2011Q3

REPORT INFORMATION
  Report Type: 
  Country: None (occurrence: None)
  Receive Date: 20110725
  Receipt Date: 20110719
  Transmission Date: 20111222
  Serious: Yes (Other)
  Sender: FDA-Public Use
  Company Number: DE-JNJFOC-20110603534

PATIENT
  Age: 80 Year
  Sex: Female

DRUGS (3)
  1. NALOXONE [Suspect]
     Indication: ANALGESIC THERAPY
     Route: 065
  2. TAPENTADOL [Suspect]
     Indication: ANALGESIC THERAPY
     Dosage: 100MG (1X 100MG), DOSE REDUCED IN THE MORNING
     Route: 065
  3. TAPENTADOL [Suspect]
     Dosage: 100 MG (2X1)
     Route: 065
     Dates: start: 20110502, end: 20110517

REACTIONS (1)
  - GAMMA-GLUTAMYLTRANSFERASE INCREASED [None]
